FAERS Safety Report 5021135-9 (Version None)
Quarter: 2006Q2

REPORT INFORMATION
  Report Type: 
  Country: None (occurrence: None)
  Receive Date: 20060425
  Receipt Date: 20050308
  Transmission Date: 20061013
  Serious: No
  Sender: FDA-Public Use
  Company Number: WAES 0503USA01219

PATIENT
  Age: 5 Year
  Sex: Female

DRUGS (2)
  1. SINGULAIR [Suspect]
     Indication: RHINITIS SEASONAL
     Dosage: 4 MG DAILY PO
     Route: 048
     Dates: start: 20050307
  2. ANTIMICROBIAL (UNSPECIFIED) [Concomitant]

REACTIONS (3)
  - COUGH [None]
  - DRUG INEFFECTIVE [None]
  - SKIN DISCOLOURATION [None]
